FAERS Safety Report 4457773-1 (Version None)
Quarter: 2004Q3

REPORT INFORMATION
  Report Type: 
  Country: None (occurrence: None)
  Receive Date: 20040917
  Receipt Date: 20031119
  Transmission Date: 20050211
  Serious: Yes (Other)
  Sender: FDA-Public Use
  Company Number: NSADSS2003018036

PATIENT
  Sex: Female

DRUGS (1)
  1. TOPAMAX [Suspect]
     Indication: MIGRAINE
     Dosage: ,  IN 1 DAY, ORAL
     Route: 048
     Dates: start: 20030319

REACTIONS (6)
  - DRY EYE [None]
  - EYE PAIN [None]
  - GLAUCOMA [None]
  - HEADACHE [None]
  - MIGRAINE [None]
  - VISION BLURRED [None]
